FAERS Safety Report 13255827 (Version 1)
Quarter: 2017Q1

REPORT INFORMATION
  Report Type: Spontaneous
  Country: ZA (occurrence: ZA)
  Receive Date: 20170221
  Receipt Date: 20170221
  Transmission Date: 20170428
  Serious: Yes (Death)
  Sender: FDA-Public Use
  Company Number: ZA-PFIZER INC-2017073823

PATIENT
  Age: 78 Year
  Sex: Male

DRUGS (5)
  1. QUETOSER [Concomitant]
     Indication: MENTAL DISORDER
     Dosage: 25 MG, UNK
     Route: 048
     Dates: start: 20160914
  2. CALCIFEROL /00107901/ [Concomitant]
     Dosage: 50000 IU, UNK
     Route: 048
     Dates: start: 20160914
  3. MEMOR [Concomitant]
     Indication: DEMENTIA ALZHEIMER^S TYPE
     Dosage: 10 MG, UNK
     Route: 048
     Dates: start: 20160914
  4. SERTRA [Suspect]
     Active Substance: SERTRALINE HYDROCHLORIDE
     Indication: MENTAL DISORDER
     Dosage: 50 MG, UNK
     Route: 048
     Dates: start: 20160914
  5. DONACEPT [Concomitant]
     Indication: DEMENTIA ALZHEIMER^S TYPE
     Dosage: 10 MG, UNK
     Route: 048
     Dates: start: 20160914

REACTIONS (1)
  - Death [Fatal]

NARRATIVE: CASE EVENT DATE: 20170216
